FAERS Safety Report 23457550 (Version 1)
Quarter: 2024Q1

REPORT INFORMATION
  Report Type: Spontaneous
  Country: CA (occurrence: CA)
  Receive Date: 20240130
  Receipt Date: 20240130
  Transmission Date: 20240410
  Serious: Yes (Other)
  Sender: FDA-Public Use
  Company Number: CA-002147023-NVSC2023CA057880

PATIENT
  Age: 24 Year
  Sex: Female

DRUGS (32)
  1. HYDROCORTISONE [Suspect]
     Active Substance: HYDROCORTISONE
     Indication: Product used for unknown indication
     Dosage: 10 MG, QD
     Route: 065
  2. HYDROCORTISONE [Suspect]
     Active Substance: HYDROCORTISONE
     Dosage: 40 MG, TID (IN THE MORNING OR MORNING AND AFTERNOON) HER EVENING DOSE WAS 5 MG
     Route: 065
  3. HYDROCORTISONE [Suspect]
     Active Substance: HYDROCORTISONE
     Dosage: 42.5 MG, QD
     Route: 065
  4. HYDROCORTISONE [Suspect]
     Active Substance: HYDROCORTISONE
     Dosage: 5 MG, QD
     Route: 065
  5. HYDROCORTISONE [Suspect]
     Active Substance: HYDROCORTISONE
     Dosage: 7.5 MG
     Route: 065
  6. ILARIS [Suspect]
     Active Substance: CANAKINUMAB
     Dosage: 150 MG (8 WEEKS, VIALS)
     Route: 058
     Dates: start: 20220101, end: 202301
  7. ILARIS [Suspect]
     Active Substance: CANAKINUMAB
     Dosage: 150 MG 8 WEEKS
     Route: 058
     Dates: start: 20220101
  8. ILARIS [Suspect]
     Active Substance: CANAKINUMAB
     Dosage: 150 MG EVERY 4 WEEKS
     Route: 065
  9. ILARIS [Suspect]
     Active Substance: CANAKINUMAB
     Indication: Tumour necrosis factor receptor-associated periodic syndrome
     Dosage: 150 MG OTHER
     Route: 065
     Dates: start: 202201
  10. ACRIVASTINE [Concomitant]
     Active Substance: ACRIVASTINE
     Indication: Product used for unknown indication
     Dosage: UNK
     Route: 065
  11. CALCIUM [Concomitant]
     Active Substance: CALCIUM
     Indication: Product used for unknown indication
     Route: 065
  12. CLARITIN [Concomitant]
     Active Substance: LORATADINE
     Indication: Product used for unknown indication
     Dosage: UNK, QD
     Route: 048
  13. CLOBAZAM [Concomitant]
     Active Substance: CLOBAZAM
     Indication: Product used for unknown indication
     Dosage: UNK, QD (STREGTH-10 MG)
     Route: 065
  14. CLOBAZAM [Concomitant]
     Active Substance: CLOBAZAM
     Dosage: UNK, QD (STREGTH-20 MG)
     Route: 065
  15. DOCONEXENT\ICOSAPENT [Concomitant]
     Active Substance: DOCONEXENT\ICOSAPENT
     Indication: Product used for unknown indication
     Dosage: QD (STRENGTH: 120-180 MG)
     Route: 048
  16. DOXEPIN [Concomitant]
     Active Substance: DOXEPIN
     Indication: Product used for unknown indication
     Dosage: UNK, QD
     Route: 065
  17. EPIPEN [Concomitant]
     Active Substance: EPINEPHRINE
     Indication: Product used for unknown indication
     Dosage: UNK, PRN
     Route: 065
  18. HYDROCORTISONE [Concomitant]
     Active Substance: HYDROCORTISONE
     Indication: Product used for unknown indication
     Route: 065
  19. IBUPROFEN [Concomitant]
     Active Substance: IBUPROFEN
     Indication: Product used for unknown indication
     Dosage: UNK, PRN
     Route: 065
  20. LACTOBACILLUS ACIDOPHILUS [Concomitant]
     Active Substance: LACTOBACILLUS ACIDOPHILUS
     Indication: Product used for unknown indication
     Dosage: 1 DOSAGE FORM, QD
     Route: 048
  21. LACTOBACILLUS RHAMNOSUS [Concomitant]
     Active Substance: LACTOBACILLUS RHAMNOSUS
     Indication: Product used for unknown indication
     Dosage: 1 DOSAGE FORM, QD (15 BILLION)
     Route: 048
  22. LEVOTHYROXINE [Concomitant]
     Active Substance: LEVOTHYROXINE\LEVOTHYROXINE SODIUM
     Indication: Product used for unknown indication
     Dosage: UNK, QD
     Route: 065
  23. LICORICE [Concomitant]
     Active Substance: LICORICE
     Indication: Product used for unknown indication
     Dosage: UNK (ROOT)
     Route: 065
  24. LORAZEPAM [Concomitant]
     Active Substance: LORAZEPAM
     Indication: Product used for unknown indication
     Dosage: 1 DOSAGE FORM
     Route: 048
  25. MAGNESIUM CITRATE [Concomitant]
     Active Substance: MAGNESIUM CITRATE
     Indication: Product used for unknown indication
     Dosage: UNK
     Route: 065
  26. MELATONIN [Concomitant]
     Active Substance: MELATONIN
     Indication: Product used for unknown indication
     Dosage: UNK
     Route: 065
  27. METHYLPREDNISOLONE [Concomitant]
     Active Substance: METHYLPREDNISOLONE
     Indication: Product used for unknown indication
     Dosage: UNK
     Route: 048
  28. OMEGA 3 [Concomitant]
     Active Substance: CAPSAICIN
     Indication: Product used for unknown indication
     Dosage: UNK, TID
     Route: 065
  29. POTASSIUM CHLORIDE [Concomitant]
     Active Substance: POTASSIUM CHLORIDE
     Indication: Product used for unknown indication
     Dosage: UNK
     Route: 048
  30. PROBIOTICS NOS [Concomitant]
     Active Substance: PROBIOTICS NOS
     Indication: Product used for unknown indication
     Route: 065
  31. VITAMIN D3 [Concomitant]
     Active Substance: CHOLECALCIFEROL
     Indication: Product used for unknown indication
     Dosage: UNK, QD
     Route: 065
  32. ZYPREXA [Concomitant]
     Active Substance: OLANZAPINE
     Indication: Product used for unknown indication
     Dosage: UNK
     Route: 048

REACTIONS (26)
  - Myasthenia gravis [Unknown]
  - Adrenal insufficiency [Unknown]
  - Haematochezia [Recovered/Resolved]
  - Pyrexia [Unknown]
  - Abdominal pain [Recovered/Resolved]
  - Nausea [Unknown]
  - Arthralgia [Unknown]
  - Pain [Recovering/Resolving]
  - Ocular discomfort [Unknown]
  - Condition aggravated [Unknown]
  - General physical health deterioration [Unknown]
  - Gastrointestinal disorder [Unknown]
  - Flushing [Unknown]
  - Headache [Unknown]
  - Muscular weakness [Unknown]
  - Fatigue [Unknown]
  - Myalgia [Unknown]
  - Menstruation irregular [Recovered/Resolved]
  - Tachycardia [Unknown]
  - Balance disorder [Unknown]
  - Nail dystrophy [Unknown]
  - Ocular hyperaemia [Unknown]
  - Palpitations [Unknown]
  - Mouth ulceration [Unknown]
  - Fall [Recovered/Resolved]
  - Rash [Recovered/Resolved]

NARRATIVE: CASE EVENT DATE: 20220101
